FAERS Safety Report 5195487-3 (Version None)
Quarter: 2006Q4

REPORT INFORMATION
  Report Type: 
  Country: None (occurrence: None)
  Receive Date: 20061222
  Receipt Date: 20061222
  Transmission Date: 20070319
  Serious: Yes (Hospitalization)
  Sender: FDA-Public Use
  Company Number: None

PATIENT
  Sex: Female

DRUGS (3)
  1. GEMCITABINE [Suspect]
     Indication: COLORECTAL CANCER
     Dosage: 1590MG IV
     Route: 042
     Dates: start: 20051117
  2. OXALIPLATIN [Suspect]
     Indication: COLORECTAL CANCER
     Dosage: 159MG IV
     Route: 042
     Dates: start: 20051118
  3. ENALAPRIL MALEATE [Concomitant]

REACTIONS (3)
  - BACK PAIN [None]
  - INFUSION RELATED REACTION [None]
  - PNEUMONIA [None]
